FAERS Safety Report 14805205 (Version 4)
Quarter: 2018Q2

REPORT INFORMATION
  Report Type: Spontaneous
  Country: US (occurrence: US)
  Receive Date: 20180425
  Receipt Date: 20180525
  Transmission Date: 20180711
  Serious: Yes (Other)
  Sender: FDA-Public Use
  Company Number: US-IMPAX LABORATORIES, INC-2018-IPXL-01325

PATIENT
  Age: 72 Year
  Sex: Male
  Weight: 79 kg

DRUGS (8)
  1. RYTARY [Suspect]
     Active Substance: CARBIDOPA\LEVODOPA
     Dosage: 36.25L/145 MG, 1 CAPSULE IN MORNING AND EVENING WITH 48.75 MG/195 MG 1 CAPSULE IN AFTERNOON
     Route: 065
  2. TRIHEXYPHEN [Concomitant]
     Indication: PARKINSON^S DISEASE
     Dosage: 2 MG, BID
     Route: 065
  3. CYCLOBENZAPRINE. [Concomitant]
     Active Substance: CYCLOBENZAPRINE
     Indication: MUSCLE SPASMS
     Dosage: 10 MG, AS NEEDED (2 OR 3 TABLETS IN A MONTH)
     Route: 065
  4. RYTARY [Suspect]
     Active Substance: CARBIDOPA\LEVODOPA
     Indication: PARKINSON^S DISEASE
     Dosage: 23.75/95 MG, ONE CAPSULE, THREE TIMES A DAY
     Route: 065
  5. AMANTADINE. [Concomitant]
     Active Substance: AMANTADINE HYDROCHLORIDE
     Indication: PARKINSON^S DISEASE
     Dosage: 100 MG, BID
     Route: 065
  6. ROPINIROLE. [Concomitant]
     Active Substance: ROPINIROLE
     Indication: PARKINSON^S DISEASE
     Dosage: 4 MG, BID
     Route: 065
  7. RYTARY [Suspect]
     Active Substance: CARBIDOPA\LEVODOPA
     Dosage: 36.25/145 MG, ONE CAPSULES THREE TIMES A DAY
     Route: 065
  8. CARBIDOPA/LEVODOPA [Concomitant]
     Active Substance: CARBIDOPA\LEVODOPA
     Indication: PARKINSON^S DISEASE
     Dosage: 25/100 MG, ONE TABLET BEDTIME
     Route: 065

REACTIONS (4)
  - Memory impairment [Unknown]
  - Confusional state [Recovering/Resolving]
  - Spinal operation [Unknown]
  - Pain [Unknown]

NARRATIVE: CASE EVENT DATE: 201804
